FAERS Safety Report 4449002-X (Version None)
Quarter: 2004Q3

REPORT INFORMATION
  Report Type: 
  Country: None (occurrence: None)
  Receive Date: 20040910
  Receipt Date: 20040826
  Transmission Date: 20050211
  Serious: No
  Sender: FDA-Public Use
  Company Number: 2004GB02073

PATIENT
  Sex: Female

DRUGS (2)
  1. NOLVADEX [Suspect]
     Dates: start: 19960101
  2. NOLVADEX [Suspect]
     Dates: start: 20020101, end: 20040601

REACTIONS (2)
  - ENDOMETRIAL CANCER [None]
  - VISION BLURRED [None]
